FAERS Safety Report 14193330 (Version 1)
Quarter: 2017Q4

REPORT INFORMATION
  Report Type: Spontaneous
  Country: US (occurrence: US)
  Receive Date: 20171115
  Receipt Date: 20171115
  Transmission Date: 20180321
  Serious: No
  Sender: FDA-Public Use
  Company Number: US-BAUSCH-BL-2017-000178

PATIENT
  Sex: Male

DRUGS (1)
  1. XENAZINE [Suspect]
     Active Substance: TETRABENAZINE
     Indication: TOURETTE^S DISORDER
     Dosage: TWICE DAILY TO THREE TIMES DAILY
     Route: 048
     Dates: start: 20161212

REACTIONS (3)
  - Movement disorder [Recovering/Resolving]
  - Agitation [Unknown]
  - Restlessness [Unknown]
